FAERS Safety Report 20879265 (Version 1)
Quarter: 2022Q2

REPORT INFORMATION
  Report Type: Spontaneous
  Country: US (occurrence: US)
  Receive Date: 20220526
  Receipt Date: 20220526
  Transmission Date: 20220721
  Serious: No
  Sender: FDA-Public Use
  Company Number: US-BAYER-2022A073258

PATIENT
  Age: 57 Year
  Sex: Female

DRUGS (3)
  1. CLARITIN-D 24 HOUR [Suspect]
     Active Substance: LORATADINE\PSEUDOEPHEDRINE SULFATE
     Indication: Hypersensitivity
     Route: 048
  2. CLARITIN-D 24 HOUR [Suspect]
     Active Substance: LORATADINE\PSEUDOEPHEDRINE SULFATE
     Indication: Nasopharyngitis
  3. IBRANCE [Concomitant]
     Active Substance: PALBOCICLIB
     Dosage: TAKE 1 CAPSULE ONCE DAILY FOR 21 DAYS ON AND 7 DAYS OFF
     Dates: start: 20220126

REACTIONS (1)
  - Insomnia [Unknown]
